FAERS Safety Report 24411303 (Version 1)
Quarter: 2024Q4

REPORT INFORMATION
  Report Type: Spontaneous
  Country: JP (occurrence: JP)
  Receive Date: 20241008
  Receipt Date: 20241008
  Transmission Date: 20250115
  Serious: Yes (Other)
  Sender: INCYTE
  Company Number: JP-INCYTE CORPORATION-2024IN010569

PATIENT

DRUGS (2)
  1. PEMAZYRE [Suspect]
     Active Substance: PEMIGATINIB
     Indication: Cholangiocarcinoma
     Dosage: 13.5 MILLIGRAM
     Route: 048
  2. PEMAZYRE [Suspect]
     Active Substance: PEMIGATINIB
     Dosage: 9.0 MILLIGRAM
     Route: 048

REACTIONS (1)
  - Renal impairment [Unknown]
